FAERS Safety Report 19788510 (Version 1)
Quarter: 2021Q3

REPORT INFORMATION
  Report Type: Spontaneous
  Country: US (occurrence: US)
  Receive Date: 20210905
  Receipt Date: 20210905
  Transmission Date: 20211014
  Serious: No
  Sender: FDA-Public Use
  Company Number: US-SA-2021SA288238

PATIENT
  Sex: Female

DRUGS (10)
  1. DESONIDE. [Concomitant]
     Active Substance: DESONIDE
  2. HYDROXYZINE HYDROCHLORIDE. [Concomitant]
     Active Substance: HYDROXYZINE HYDROCHLORIDE
  3. DULERA [Concomitant]
     Active Substance: FORMOTEROL FUMARATE DIHYDRATE\MOMETASONE FUROATE
  4. ZYRTEC [Concomitant]
     Active Substance: CETIRIZINE HYDROCHLORIDE
  5. DUPIXENT [Suspect]
     Active Substance: DUPILUMAB
     Indication: DERMATITIS ALLERGIC
     Dosage: 200 MG
     Route: 058
  6. SINGULAIR [Concomitant]
     Active Substance: MONTELUKAST SODIUM
  7. TACROLIMUS MONOHYDRATE [Concomitant]
     Active Substance: TACROLIMUS
  8. EUCRISA [Concomitant]
     Active Substance: CRISABOROLE
  9. TRIAMCINOLONE ACETONIDE. [Concomitant]
     Active Substance: TRIAMCINOLONE ACETONIDE
  10. PREDNISOLONE ACETATE. [Concomitant]
     Active Substance: PREDNISOLONE ACETATE

REACTIONS (6)
  - Injection site swelling [Recovered/Resolved]
  - Eczema [Unknown]
  - Condition aggravated [Unknown]
  - General symptom [Unknown]
  - Product use issue [Unknown]
  - Product use in unapproved indication [Unknown]
